FAERS Safety Report 6921634-6 (Version None)
Quarter: 2010Q3

REPORT INFORMATION
  Report Type: 
  Country: None (occurrence: None)
  Receive Date: 20100812
  Receipt Date: 20100805
  Transmission Date: 20110219
  Serious: Yes (Life-Threatening, Hospitalization)
  Sender: FDA-Public Use
  Company Number: GB-GENENTECH-303785

PATIENT
  Sex: Male

DRUGS (7)
  1. RITUXIMAB [Suspect]
     Indication: WALDENSTROM'S MACROGLOBULINAEMIA
     Dosage: UNK
     Route: 042
     Dates: start: 20100216, end: 20100603
  2. CYCLOPHOSPHAMIDE [Suspect]
     Indication: WALDENSTROM'S MACROGLOBULINAEMIA
     Dosage: UNK
     Route: 042
     Dates: start: 20100216, end: 20100603
  3. VINCRISTINE [Suspect]
     Indication: WALDENSTROM'S MACROGLOBULINAEMIA
     Dosage: UNK
     Route: 042
     Dates: start: 20100216, end: 20100603
  4. DOXORUBICIN HCL [Concomitant]
     Indication: WALDENSTROM'S MACROGLOBULINAEMIA
     Route: 042
  5. DOXORUBICIN HCL [Concomitant]
     Dosage: UNK
     Route: 042
     Dates: start: 20100216, end: 20100603
  6. PREDNISOLONE [Concomitant]
     Indication: WALDENSTROM'S MACROGLOBULINAEMIA
     Dosage: UNK
     Route: 048
  7. OMEPRAZOLE [Concomitant]
     Indication: WALDENSTROM'S MACROGLOBULINAEMIA
     Route: 048

REACTIONS (3)
  - NEUTROPHIL COUNT DECREASED [None]
  - PROGRESSIVE MULTIFOCAL LEUKOENCEPHALOPATHY [None]
  - PYREXIA [None]
